FAERS Safety Report 9601335 (Version 8)
Quarter: 2018Q2

REPORT INFORMATION
  Report Type: Report from Study
  Country: IN (occurrence: IN)
  Receive Date: 20131007
  Receipt Date: 20180515
  Transmission Date: 20180711
  Serious: Yes (Hospitalization)
  Sender: FDA-Public Use
  Company Number: PHHO2013IN012572

PATIENT
  Age: 63 Year
  Sex: Male
  Weight: 57 kg

DRUGS (16)
  1. VINCRISTINE [Suspect]
     Active Substance: VINCRISTINE
     Indication: CHEMOTHERAPY
     Dosage: 2 MG, UNK
     Route: 042
     Dates: start: 20130918
  2. PREDNISOLONE. [Suspect]
     Active Substance: PREDNISOLONE
     Indication: CHEMOTHERAPY
     Dosage: 50 MG, BID
     Route: 048
     Dates: start: 20130918
  3. DEXA (BETAMETHASONE) [Concomitant]
     Active Substance: BETAMETHASONE
     Indication: PREMEDICATION
     Dosage: 8 MG, UNK
     Route: 042
     Dates: start: 20131212, end: 20131212
  4. PAN [Concomitant]
     Indication: GASTRITIS PROPHYLAXIS
     Dosage: 40 MG, QD
     Route: 048
     Dates: start: 20130919
  5. GLIMESTAR [Concomitant]
     Indication: DIABETES MELLITUS
     Dosage: 2 MG, UNK
     Route: 048
     Dates: start: 2005
  6. AVIL [Concomitant]
     Active Substance: PHENIRAMINE
     Indication: PREMEDICATION
     Dosage: 1 DF (AMPOULE), UNK
     Route: 042
     Dates: start: 20130918
  7. CALPOL [Concomitant]
     Active Substance: ACETAMINOPHEN
     Indication: PREMEDICATION
     Dosage: 500 MG, UNK
     Route: 048
     Dates: start: 20130918
  8. EMESET [Concomitant]
     Active Substance: ONDANSETRON HYDROCHLORIDE
     Indication: PREMEDICATION
     Dosage: 8 MG, UNK
     Route: 042
     Dates: start: 20130918
  9. PEPTICAINE [Concomitant]
     Indication: GASTRITIS PROPHYLAXIS
     Dosage: 2 TPS
     Route: 048
     Dates: start: 20130927
  10. RANTAC [Concomitant]
     Active Substance: RANITIDINE HYDROCHLORIDE
     Indication: PREMEDICATION
     Dosage: 1 DF (AMPOULE), UNK
     Route: 042
     Dates: start: 20130918
  11. CYCLOPHOSPHAMIDE. [Suspect]
     Active Substance: CYCLOPHOSPHAMIDE
     Indication: CHEMOTHERAPY
     Dosage: 1267.5 MG, UNK
     Route: 042
     Dates: start: 20130918
  12. EMESET [Concomitant]
     Active Substance: ONDANSETRON HYDROCHLORIDE
     Indication: PROPHYLAXIS OF NAUSEA AND VOMITING
  13. GLYCINORM [Concomitant]
     Indication: DIABETES MELLITUS
     Dosage: 40 MG, ONCE/SINGLE, DAILY
     Route: 048
     Dates: start: 20131012, end: 20131213
  14. HUMAN INSULIN [Concomitant]
     Active Substance: INSULIN HUMAN
     Indication: DIABETES MELLITUS
     Dosage: 15-0-10 U
     Route: 065
     Dates: start: 20130919
  15. GP2013 [Suspect]
     Active Substance: RITUXIMAB
     Indication: NON-HODGKIN^S LYMPHOMA
     Dosage: 375 MG/M2, UNK
     Route: 042
     Dates: start: 20130918, end: 20131212
  16. NEUGABA [Concomitant]
     Indication: PROPHYLAXIS
     Dosage: 75 MG, ONCE/SINGLE,DAILY
     Route: 048
     Dates: start: 20131213, end: 20131213

REACTIONS (4)
  - Oral candidiasis [Recovered/Resolved]
  - Febrile neutropenia [Recovered/Resolved]
  - Febrile neutropenia [Not Recovered/Not Resolved]
  - Hyperglycaemia [Recovered/Resolved]

NARRATIVE: CASE EVENT DATE: 20130926
